FAERS Safety Report 13213503 (Version 1)
Quarter: 2017Q1

REPORT INFORMATION
  Report Type: Spontaneous
  Country: US (occurrence: US)
  Receive Date: 20170210
  Receipt Date: 20170210
  Transmission Date: 20170428
  Serious: No
  Sender: FDA-Public Use
  Company Number: US-PERRIGO-16US017216

PATIENT
  Age: 13 Year
  Sex: Female
  Weight: 48.98 kg

DRUGS (3)
  1. TRETINOIN. [Suspect]
     Active Substance: TRETINOIN
     Indication: ACNE
     Dosage: PEA SIZE AMOUNT, QHS
     Route: 061
     Dates: start: 201501, end: 201501
  2. TRETINOIN. [Suspect]
     Active Substance: TRETINOIN
     Dosage: MORE THAN PEA SIZE AMOUNT, SINGLE
     Route: 061
     Dates: start: 201604, end: 201604
  3. TRETINOIN. [Suspect]
     Active Substance: TRETINOIN
     Dosage: PEA SIZE AMOUNT, QHS
     Route: 061
     Dates: start: 20160329, end: 20160612

REACTIONS (3)
  - Condition aggravated [Not Recovered/Not Resolved]
  - Application site discolouration [Not Recovered/Not Resolved]
  - Drug ineffective [Unknown]

NARRATIVE: CASE EVENT DATE: 201501
